FAERS Safety Report 17605430 (Version 1)
Quarter: 2020Q1

REPORT INFORMATION
  Report Type: Report from Study
  Country: US (occurrence: US)
  Receive Date: 20200331
  Receipt Date: 20200331
  Transmission Date: 20200409
  Serious: Yes (Other)
  Sender: FDA-Public Use
  Company Number: US-MYLANLABS-2019M1048911

PATIENT
  Sex: Female

DRUGS (2)
  1. METFORMIN [Suspect]
     Active Substance: METFORMIN HYDROCHLORIDE
     Indication: TRIPLE NEGATIVE BREAST CANCER
     Dosage: 850 MILLIGRAM, BID
     Route: 065
  2. ERLOTINIB [Suspect]
     Active Substance: ERLOTINIB
     Indication: TRIPLE NEGATIVE BREAST CANCER
     Dosage: 150 MILLIGRAM, QD
     Route: 065

REACTIONS (2)
  - Rash [Not Recovered/Not Resolved]
  - Hyponatraemia [Recovered/Resolved]
